FAERS Safety Report 18571488 (Version 1)
Quarter: 2020Q4

REPORT INFORMATION
  Report Type: Spontaneous
  Country: US (occurrence: US)
  Receive Date: 20201202
  Receipt Date: 20201202
  Transmission Date: 20210114
  Serious: Yes (Death, Other)
  Sender: FDA-Public Use
  Company Number: US-SLATE RUN PHARMACEUTICALS-20US000340

PATIENT

DRUGS (6)
  1. TACROLIMUS. [Concomitant]
     Active Substance: TACROLIMUS
     Indication: DONOR SPECIFIC ANTIBODY PRESENT
     Route: 065
  2. TERBINAFINE. [Concomitant]
     Active Substance: TERBINAFINE
     Indication: TRICHOPHYTOSIS
     Dosage: 500 MILLIGRAM, Q 12 HR
     Route: 048
  3. POSACONAZOLE [Concomitant]
     Active Substance: POSACONAZOLE
     Indication: TRICHOPHYTOSIS
     Dosage: 4 MILLIGRAM PER KILOGRAM, QD
     Route: 065
     Dates: end: 201901
  4. VORICONAZOLE. [Suspect]
     Active Substance: VORICONAZOLE
     Dosage: 6 MILLIGRAM PER KILOGRAM
     Route: 065
     Dates: start: 2018
  5. VORICONAZOLE. [Suspect]
     Active Substance: VORICONAZOLE
     Indication: TRICHOPHYTOSIS
     Dosage: 4 MILLIGRAM PER KILOGRAM, Q 12 HR
     Route: 065
  6. MYCOPHENOLATE MOFETIL. [Concomitant]
     Active Substance: MYCOPHENOLATE MOFETIL
     Indication: DONOR SPECIFIC ANTIBODY PRESENT
     Route: 065

REACTIONS (5)
  - Calciphylaxis [Unknown]
  - Hallucination, visual [Unknown]
  - Renal failure [Unknown]
  - Cardiac arrest [Fatal]
  - Off label use [Unknown]

NARRATIVE: CASE EVENT DATE: 2018
